FAERS Safety Report 14506565 (Version 2)
Quarter: 2018Q1

REPORT INFORMATION
  Report Type: Report from Study
  Country: US (occurrence: US)
  Receive Date: 20180208
  Receipt Date: 20180315
  Transmission Date: 20180509
  Serious: Yes (Congenital Anomaly)
  Sender: FDA-Public Use
  Company Number: US-UCBSA-2018002658

PATIENT
  Age: 1 Year
  Sex: Male

DRUGS (19)
  1. CERTOLIZUMAB PEGOL RA [Suspect]
     Active Substance: CERTOLIZUMAB PEGOL
     Indication: CROHN^S DISEASE
     Dosage: 200 MG, 2X/MONTH
     Route: 064
     Dates: start: 20140722, end: 20150415
  2. ACYCLOVIR. [Concomitant]
     Active Substance: ACYCLOVIR
     Indication: PRODUCT USED FOR UNKNOWN INDICATION
     Dosage: 4.5 DF, ONCE DAILY (QD)
     Route: 048
     Dates: start: 20140916, end: 20141010
  3. ESTROGEN NOS [Concomitant]
     Active Substance: ESTROGENS
     Indication: INFERTILITY
     Dosage: UNK, 2X/WEEK
     Route: 061
     Dates: start: 20140701, end: 20140920
  4. OXYCODONE [Concomitant]
     Active Substance: OXYCODONE
     Indication: PRODUCT USED FOR UNKNOWN INDICATION
     Dosage: 1 DF, 2X/DAY (BID)
     Route: 048
     Dates: start: 20140917, end: 20140918
  5. TEA, GREEN [Concomitant]
     Active Substance: GREEN TEA LEAF
     Indication: PRODUCT USED FOR UNKNOWN INDICATION
     Dosage: UNK, ONCE DAILY (QD)
     Route: 048
     Dates: start: 20140708, end: 20150415
  6. ZITHROMAX [Concomitant]
     Active Substance: AZITHROMYCIN DIHYDRATE
     Indication: NASOPHARYNGITIS
     Dosage: 1 DF, ONCE DAILY (QD)
     Route: 048
     Dates: start: 20150408, end: 20150410
  7. EYE DROPS [Concomitant]
     Active Substance: UNSPECIFIED INGREDIENT
     Indication: HERPES ZOSTER
     Dosage: 1 PG, ONCE DAILY (QD)
     Route: 061
     Dates: start: 20141007, end: 20141010
  8. PRENATAL VITAMINS [Concomitant]
     Active Substance: VITAMINS
     Indication: PRODUCT USED FOR UNKNOWN INDICATION
     Dosage: 1 DF, ONCE DAILY (QD)
     Route: 048
     Dates: start: 20140708, end: 20150415
  9. TYLENOL EXTRA STRENGTH [Concomitant]
     Active Substance: ACETAMINOPHEN
     Dosage: 1 DF, AS NEEDED (PRN) (500 MG)
     Route: 048
     Dates: start: 20150109, end: 20150415
  10. TYLENOL EXTRA STRENGTH [Concomitant]
     Active Substance: ACETAMINOPHEN
     Indication: HEADACHE
     Dosage: 1 DF, 2X/DAY (BID)
     Route: 048
     Dates: start: 20140708, end: 20140909
  11. FISH OIL W/VITAMIN D NOS [Concomitant]
     Indication: PRODUCT USED FOR UNKNOWN INDICATION
     Dosage: 1 DF, 2X/WEEK
     Route: 048
     Dates: start: 20140708, end: 20150415
  12. FLUARIX 2011/2012 [Concomitant]
     Active Substance: INFLUENZA A VIRUS A/CALIFORNIA/7/2009 X-181 (H1N1) ANTIGEN (FORMALDEHYDE INACTIVATED)\INFLUENZA A VIRUS A/VICTORIA/210/2009 X-187 (H3N2) ANTIGEN (FORMALDEHYDE INACTIVATED)\INFLUENZA B VIRUS B/BRISBANE/60/2008 ANTIGEN (FORMALDEHYDE INACTIVATED)\INFLUENZA VIRUS VACCINE
     Indication: PRODUCT USED FOR UNKNOWN INDICATION
     Dosage: 1 DF, TOTAL
     Dates: start: 20141014, end: 20141014
  13. PROBIOTIC [Concomitant]
     Active Substance: PROBIOTICS NOS
     Indication: PRODUCT USED FOR UNKNOWN INDICATION
     Dosage: UNK
     Route: 048
     Dates: start: 20140708, end: 20150415
  14. TUMS [Concomitant]
     Active Substance: CALCIUM CARBONATE
     Indication: DYSPEPSIA
     Dosage: UNK
     Route: 048
     Dates: start: 20150109, end: 20150330
  15. UNISOM SLEEPTABS [Concomitant]
     Active Substance: DOXYLAMINE SUCCINATE
     Indication: SLEEP DISORDER
     Dosage: 1 DF, 3X/DAY (TID)
     Route: 048
     Dates: start: 20150109, end: 20150330
  16. PROGESTERONE. [Concomitant]
     Active Substance: PROGESTERONE
     Indication: INFERTILITY
     Dosage: 600 MG, ONCE DAILY (QD)
     Dates: start: 20140719, end: 20140920
  17. BOOSTRIX [Concomitant]
     Active Substance: TETANUS TOXOID, REDUCED DIPHTHERIA TOXOID AND ACELLULAR PERTUSSIS VACCINE, ADSORBED ANTIGENS
     Indication: IMMUNISATION
     Dosage: 1 DF, TOTAL
     Dates: start: 20150310, end: 20150310
  18. ZOFRAN [Concomitant]
     Active Substance: ONDANSETRON HYDROCHLORIDE
     Indication: NAUSEA
     Dosage: 1 DF, 3X/DAY (TID)
     Route: 048
     Dates: start: 20140917, end: 20140919
  19. ZITHROMAX [Concomitant]
     Active Substance: AZITHROMYCIN DIHYDRATE
     Indication: SINUSITIS

REACTIONS (2)
  - Foetal exposure during pregnancy [Unknown]
  - Speech disorder developmental [Unknown]

NARRATIVE: CASE EVENT DATE: 20140722
